FAERS Safety Report 24577220 (Version 1)
Quarter: 2024Q4

REPORT INFORMATION
  Report Type: Spontaneous
  Country: US (occurrence: None)
  Receive Date: 20241104
  Receipt Date: 20241104
  Transmission Date: 20250115
  Serious: No
  Sender: Public
  Company Number: None

PATIENT
  Age: 38 Month
  Sex: Female
  Weight: 63.5 kg

DRUGS (1)
  1. MACROBID [Suspect]
     Active Substance: NITROFURANTOIN\NITROFURANTOIN MONOHYDRATE
     Dosage: 14  TOT DILY ORAL?
     Route: 048

REACTIONS (8)
  - Feeling abnormal [None]
  - Abdominal pain upper [None]
  - Movement disorder [None]
  - Dyspnoea [None]
  - Sleep disorder [None]
  - Nausea [None]
  - Vomiting [None]
  - Headache [None]

NARRATIVE: CASE EVENT DATE: 20200710
